FAERS Safety Report 16539627 (Version 1)
Quarter: 2019Q3

REPORT INFORMATION
  Report Type: Spontaneous
  Country: US (occurrence: US)
  Receive Date: 20190705
  Receipt Date: 20190705
  Transmission Date: 20191004
  Serious: Yes (Disabling)
  Sender: FDA-Public Use
  Company Number: None

PATIENT
  Age: 78 Year
  Sex: Female
  Weight: 67.5 kg

DRUGS (1)
  1. DENOSUMAB [Suspect]
     Active Substance: DENOSUMAB
     Indication: OSTEOPOROSIS
     Dosage: ?          OTHER FREQUENCY:RECEIVED ONCE;?
     Route: 058
     Dates: start: 20190522, end: 20190522

REACTIONS (7)
  - Pruritus [None]
  - Lumbar vertebral fracture [None]
  - Back pain [None]
  - Arthralgia [None]
  - Gait disturbance [None]
  - Dysstasia [None]
  - Fractured sacrum [None]

NARRATIVE: CASE EVENT DATE: 20190522
